FAERS Safety Report 5509392-3 (Version None)
Quarter: 2007Q4

REPORT INFORMATION
  Report Type: 
  Country: None (occurrence: None)
  Receive Date: 20071107
  Receipt Date: 20071031
  Transmission Date: 20080405
  Serious: Yes (Death, Hospitalization, Other)
  Sender: FDA-Public Use
  Company Number: US-MERCK-0704USA03307

PATIENT
  Age: 59 Year
  Sex: Male

DRUGS (2)
  1. FOSAMAX [Suspect]
     Route: 048
  2. ZOMETA [Suspect]
     Route: 065

REACTIONS (13)
  - ANXIETY [None]
  - BENIGN NEOPLASM OF PROSTATE [None]
  - BLINDNESS UNILATERAL [None]
  - CORONARY ARTERY DISEASE [None]
  - DEPRESSION [None]
  - DIABETES MELLITUS [None]
  - DRY EYE [None]
  - HERPES ZOSTER [None]
  - OSTEONECROSIS [None]
  - PANCYTOPENIA [None]
  - PROSTATE CANCER METASTATIC [None]
  - RETINAL VEIN THROMBOSIS [None]
  - SEPSIS [None]
